FAERS Safety Report 18827787 (Version 1)
Quarter: 2021Q1

REPORT INFORMATION
  Report Type: Spontaneous
  Country: US (occurrence: US)
  Receive Date: 20210201
  Receipt Date: 20210201
  Transmission Date: 20210419
  Serious: No
  Sender: FDA-Public Use
  Company Number: US-ABBVIE-20K-163-3491150-00

PATIENT

DRUGS (1)
  1. HUMIRA [Suspect]
     Active Substance: ADALIMUMAB
     Indication: PRODUCT USED FOR UNKNOWN INDICATION
     Route: 058

REACTIONS (7)
  - Skin infection [Unknown]
  - Purulent discharge [Unknown]
  - Condition aggravated [Not Recovered/Not Resolved]
  - Dermatitis atopic [Unknown]
  - Eczema [Unknown]
  - Scab [Unknown]
  - Hypophagia [Unknown]
